FAERS Safety Report 5275498-X (Version None)
Quarter: 2007Q1

REPORT INFORMATION
  Report Type: 
  Country: None (occurrence: None)
  Receive Date: 20070326
  Receipt Date: 20070317
  Transmission Date: 20070707
  Serious: Yes (Hospitalization)
  Sender: FDA-Public Use
  Company Number: GB-ROCHE-488862

PATIENT
  Age: 74 Year
  Sex: Female
  Weight: 92 kg

DRUGS (3)
  1. XENICAL [Suspect]
     Indication: OBESITY
     Route: 048
     Dates: start: 20060914, end: 20070215
  2. UNSPECIFIED MEDICATIONS [Concomitant]
  3. BETA BLOCKER NOS [Suspect]
     Indication: DRUG USE FOR UNKNOWN INDICATION
     Route: 065

REACTIONS (1)
  - HEART RATE DECREASED [None]
